FAERS Safety Report 5408176-4 (Version None)
Quarter: 2007Q3

REPORT INFORMATION
  Report Type: 
  Country: None (occurrence: None)
  Receive Date: 20070808
  Receipt Date: 20070803
  Transmission Date: 20080115
  Serious: Yes (Hospitalization)
  Sender: FDA-Public Use
  Company Number: HQWYE688120DEC06

PATIENT
  Sex: Male
  Weight: 88 kg

DRUGS (2)
  1. TEMSIROLIMUS [Suspect]
     Indication: MANTLE CELL LYMPHOMA
     Route: 042
     Dates: start: 20061208
  2. ACETAMINOPHEN [Concomitant]
     Indication: HEADACHE
     Dosage: 200 MG DAILY DOSE
     Route: 048
     Dates: start: 20061210, end: 20061217

REACTIONS (7)
  - ANOREXIA [None]
  - ASTHENIA [None]
  - GENERAL PHYSICAL HEALTH DETERIORATION [None]
  - HEADACHE [None]
  - LOWER RESPIRATORY TRACT INFECTION [None]
  - PYREXIA [None]
  - WEIGHT DECREASED [None]
